FAERS Safety Report 4938367-8 (Version None)
Quarter: 2006Q1

REPORT INFORMATION
  Report Type: 
  Country: None (occurrence: None)
  Receive Date: 20060308
  Receipt Date: 20060308
  Transmission Date: 20060701
  Serious: Yes (Disabling)
  Sender: FDA-Public Use
  Company Number: None

PATIENT
  Age: 38 Year
  Sex: Female

DRUGS (1)
  1. OMNIPAQUE 350 [Suspect]
     Indication: COMPUTERISED TOMOGRAM
     Dosage: 350 ONE TIME IV
     Route: 042
     Dates: start: 20051104, end: 20051104

REACTIONS (3)
  - CONTRAST MEDIA REACTION [None]
  - DYSPNOEA [None]
  - SNEEZING [None]
